FAERS Safety Report 5879354-5 (Version None)
Quarter: 2008Q3

REPORT INFORMATION
  Report Type: 
  Country: None (occurrence: None)
  Receive Date: 20080912
  Receipt Date: 20080903
  Transmission Date: 20090109
  Serious: Yes (Hospitalization)
  Sender: FDA-Public Use
  Company Number: A0745722A

PATIENT
  Age: 76 Year
  Sex: Male
  Weight: 66 kg

DRUGS (3)
  1. ROSIGLITAZONE [Suspect]
     Dosage: 8MG PER DAY
     Route: 048
     Dates: start: 20070925
  2. ARICEPT [Concomitant]
     Indication: DEMENTIA
     Dosage: 10MG PER DAY
     Route: 048
     Dates: start: 20040424
  3. METFORMIN [Concomitant]
     Dosage: 500MG THREE TIMES PER DAY
     Route: 048
     Dates: start: 20070815

REACTIONS (2)
  - AGGRESSION [None]
  - DEMENTIA [None]
